FAERS Safety Report 5935224-5 (Version None)
Quarter: 2008Q4

REPORT INFORMATION
  Report Type: 
  Country: None (occurrence: None)
  Receive Date: 20081028
  Receipt Date: 20081023
  Transmission Date: 20090506
  Serious: Yes (Hospitalization)
  Sender: FDA-Public Use
  Company Number: APP200801023

PATIENT
  Age: 45 Year
  Sex: Male
  Weight: 77 kg

DRUGS (15)
  1. HEPARIN SODIUM INJECTION [Suspect]
     Indication: ANTICOAGULANT THERAPY
     Dosage: 70 U/KG, INTRAVENOUS BOLUS
     Route: 040
     Dates: start: 20080925, end: 20080925
  2. ASPIRIN [Concomitant]
  3. PLAVIX [Concomitant]
  4. METOPROLOL TARTRATE [Concomitant]
  5. SIMVASTATIN [Concomitant]
  6. VALIUM [Concomitant]
  7. VERSED [Concomitant]
  8. FENTANYL-100 [Concomitant]
  9. NTG (GLYCERYL TRINITRATE) [Concomitant]
  10. SODIUM CHLORIDE [Concomitant]
  11. OXYCODONE HCL [Concomitant]
  12. CYMBALTA [Concomitant]
  13. IBUPROFEN [Concomitant]
  14. KETOROLAC (KETOROLAC) [Concomitant]
  15. LISINOPRIL [Concomitant]

REACTIONS (2)
  - ANAEMIA [None]
  - MYOCARDIAL ISCHAEMIA [None]
